FAERS Safety Report 9956092 (Version 1)
Quarter: 2014Q1

REPORT INFORMATION
  Report Type: Spontaneous
  Country: US (occurrence: US)
  Receive Date: 20140304
  Receipt Date: 20140304
  Transmission Date: 20141002
  Serious: No
  Sender: FDA-Public Use
  Company Number: US-ABBVIE-13P-163-1088378-00

PATIENT
  Age: 61 Year
  Sex: Female
  Weight: 95.34 kg

DRUGS (4)
  1. HUMIRA [Suspect]
     Indication: CROHN^S DISEASE
     Dates: start: 2012
  2. PANTOPRAZOLE [Concomitant]
     Indication: GASTRIC ULCER
  3. LISINOPRIL [Concomitant]
     Indication: HYPERTENSION
  4. GABAPENTIN [Concomitant]
     Indication: NEUROPATHY PERIPHERAL

REACTIONS (1)
  - Tooth fracture [Not Recovered/Not Resolved]
